FAERS Safety Report 6024030-1 (Version None)
Quarter: 2008Q4

REPORT INFORMATION
  Report Type: 
  Country: None (occurrence: None)
  Receive Date: 20081222
  Receipt Date: 20080926
  Transmission Date: 20090506
  Serious: No
  Sender: FDA-Public Use
  Company Number: SPV1-2008-02085

PATIENT
  Age: 11 Year
  Sex: Male
  Weight: 23.6 kg

DRUGS (3)
  1. VYVANSE [Suspect]
     Indication: ATTENTION DEFICIT/HYPERACTIVITY DISORDER
     Dosage: 70 MG, 1X/DAY:QD, ORAL
     Route: 048
     Dates: start: 20070901, end: 20080923
  2. HUMATROPE [Concomitant]
  3. ADDERALL 10 [Concomitant]

REACTIONS (1)
  - DRUG EFFECT DECREASED [None]
